FAERS Safety Report 4532344-7 (Version None)
Quarter: 2004Q4

REPORT INFORMATION
  Report Type: 
  Country: None (occurrence: None)
  Receive Date: 20041217
  Receipt Date: 20041205
  Transmission Date: 20050328
  Serious: Yes (Other)
  Sender: FDA-Public Use
  Company Number: 2004007070

PATIENT
  Age: 12 Year
  Sex: Male

DRUGS (2)
  1. ZOLOFT [Suspect]
     Indication: ILL-DEFINED DISORDER
     Dosage: 200 MG (2 IN 1 D)
  2. PAROXETINE HCL [Concomitant]

REACTIONS (5)
  - FIGHT IN SCHOOL [None]
  - HALLUCINATION, AUDITORY [None]
  - INSOMNIA [None]
  - LEGAL PROBLEM [None]
  - MURDER [None]
